FAERS Safety Report 7377460-X (Version None)
Quarter: 2011Q1

REPORT INFORMATION
  Report Type: 
  Country: None (occurrence: None)
  Receive Date: 20110328
  Receipt Date: 20110317
  Transmission Date: 20110831
  Serious: Yes (Hospitalization, Other)
  Sender: FDA-Public Use
  Company Number: PHHY2010MX43686

PATIENT
  Age: 77 Year
  Sex: Female

DRUGS (1)
  1. EXFORGE HCT [Suspect]
     Indication: HYPERTENSION
     Dosage: 1 TABLET (320/10/25 MG) PER DAY
     Route: 048
     Dates: start: 20090101, end: 20100601

REACTIONS (4)
  - MUSCLE SPASMS [None]
  - BLOOD POTASSIUM ABNORMAL [None]
  - CORONARY ARTERY OCCLUSION [None]
  - POLLAKIURIA [None]
